FAERS Safety Report 7041174-6 (Version None)
Quarter: 2010Q4

REPORT INFORMATION
  Report Type: 
  Country: None (occurrence: None)
  Receive Date: 20101013
  Receipt Date: 20101001
  Transmission Date: 20110411
  Serious: Yes (Other)
  Sender: FDA-Public Use
  Company Number: SK-JNJFOC-20100906844

PATIENT
  Sex: Female
  Weight: 57 kg

DRUGS (3)
  1. REMICADE [Suspect]
     Indication: CROHN'S DISEASE
     Dosage: A TOTAL OF 17 INFUSIONS
     Route: 042
  2. PENTASA [Concomitant]
     Indication: CROHN'S DISEASE
  3. HYDROCORTISONE [Concomitant]
     Indication: PREMEDICATION
     Route: 042

REACTIONS (7)
  - COUGH [None]
  - FACE OEDEMA [None]
  - INFUSION RELATED REACTION [None]
  - NASOPHARYNGITIS [None]
  - PRURITUS [None]
  - RHINORRHOEA [None]
  - SNEEZING [None]
